FAERS Safety Report 14314941 (Version 1)
Quarter: 2017Q4

REPORT INFORMATION
  Report Type: Spontaneous
  Country: JP (occurrence: JP)
  Receive Date: 20171221
  Receipt Date: 20171221
  Transmission Date: 20180321
  Serious: Yes (Other)
  Sender: FDA-Public Use
  Company Number: JP-MYLANLABS-2017M1078040

PATIENT
  Age: 5 Year
  Sex: Male

DRUGS (1)
  1. DEXAMETHASONE. [Suspect]
     Active Substance: DEXAMETHASONE
     Indication: B PRECURSOR TYPE ACUTE LEUKAEMIA
     Dosage: 10MG/M2/DAY; 3 SCHEDULED ADMINISTRATIONS
     Route: 065

REACTIONS (2)
  - Ocular hypertension [Recovering/Resolving]
  - Retinal degeneration [Recovering/Resolving]
